FAERS Safety Report 23739792 (Version 4)
Quarter: 2024Q2

REPORT INFORMATION
  Report Type: Report from Study
  Country: US (occurrence: US)
  Receive Date: 20240414
  Receipt Date: 20240618
  Transmission Date: 20240716
  Serious: Yes (Other)
  Sender: FDA-Public Use
  Company Number: US-TEVA-VS-3180816

PATIENT
  Age: 24 Year
  Sex: Female

DRUGS (2)
  1. CLARAVIS [Suspect]
     Active Substance: ISOTRETINOIN
     Indication: Product used for unknown indication
     Route: 065
  2. CLARAVIS [Suspect]
     Active Substance: ISOTRETINOIN
     Indication: Product used for unknown indication
     Route: 065
     Dates: start: 20240219, end: 20240403

REACTIONS (5)
  - Abortion spontaneous [Unknown]
  - Unintended pregnancy [Unknown]
  - Lip dry [Unknown]
  - Skin lesion [Unknown]
  - Chapped lips [Unknown]

NARRATIVE: CASE EVENT DATE: 20240401
